FAERS Safety Report 17564886 (Version 8)
Quarter: 2025Q3

REPORT INFORMATION
  Report Type: Report from Study
  Country: US (occurrence: US)
  Receive Date: 20200320
  Receipt Date: 20250904
  Transmission Date: 20251021
  Serious: Yes (Hospitalization, Other)
  Sender: TAKEDA
  Company Number: US-SHIRE-US202010578

PATIENT
  Sex: Female
  Weight: 69 kg

DRUGS (18)
  1. HUMAN IMMUNOGLOBULIN G\HYALURONIDASE RECOMBINANT HUMAN [Suspect]
     Active Substance: HUMAN IMMUNOGLOBULIN G\HYALURONIDASE (HUMAN RECOMBINANT)
     Indication: Immunodeficiency common variable
  2. HUMAN IMMUNOGLOBULIN G\HYALURONIDASE RECOMBINANT HUMAN [Suspect]
     Active Substance: HUMAN IMMUNOGLOBULIN G\HYALURONIDASE (HUMAN RECOMBINANT)
     Dosage: 40 GRAM, Q4WEEKS
  3. DIPHENHYDRAMINE [Concomitant]
     Active Substance: DIPHENHYDRAMINE
  4. EPINEPHRINE [Concomitant]
     Active Substance: EPINEPHRINE
  5. SODIUM CHLORIDE [Concomitant]
     Active Substance: SODIUM CHLORIDE
  6. ZYRTEC [Concomitant]
     Active Substance: CETIRIZINE HYDROCHLORIDE
  7. CELEBREX [Concomitant]
     Active Substance: CELECOXIB
  8. ACETAMINOPHEN [Concomitant]
     Active Substance: ACETAMINOPHEN
  9. SINGULAIR [Concomitant]
     Active Substance: MONTELUKAST SODIUM
  10. SODIUM CHLORIDE [Concomitant]
     Active Substance: SODIUM CHLORIDE
  11. HYDROXYZINE HYDROCHLORIDE [Concomitant]
     Active Substance: HYDROXYZINE HYDROCHLORIDE
  12. NORCO [Concomitant]
     Active Substance: ACETAMINOPHEN\HYDROCODONE BITARTRATE
  13. LIDOCAINE [Concomitant]
     Active Substance: LIDOCAINE
  14. Lmx [Concomitant]
  15. PROMETRIUM [Concomitant]
     Active Substance: PROGESTERONE
  16. DIPHENHYDRAMINE HYDROCHLORIDE [Concomitant]
     Active Substance: DIPHENHYDRAMINE HYDROCHLORIDE
  17. XOPENEX [Concomitant]
     Active Substance: LEVALBUTEROL HYDROCHLORIDE
  18. GUAIFENESIN [Concomitant]
     Active Substance: GUAIFENESIN

REACTIONS (15)
  - Cholecystitis [Unknown]
  - Ligament rupture [Unknown]
  - Laryngitis [Unknown]
  - Bronchitis [Unknown]
  - Infection [Unknown]
  - Herpes zoster [Unknown]
  - Pain [Unknown]
  - COVID-19 [Unknown]
  - Nasopharyngitis [Unknown]
  - Bone density abnormal [Unknown]
  - Biliary colic [Unknown]
  - Sleep disorder [Unknown]
  - Injection site inflammation [Unknown]
  - Product dose omission issue [Unknown]
  - Injection site pain [Unknown]
